FAERS Safety Report 23581370 (Version 2)
Quarter: 2024Q1

REPORT INFORMATION
  Report Type: Spontaneous
  Country: US (occurrence: US)
  Receive Date: 20240229
  Receipt Date: 20240304
  Transmission Date: 20240409
  Serious: No
  Sender: FDA-Public Use
  Company Number: US-BRISTOL-MYERS SQUIBB COMPANY-2024-032692

PATIENT
  Age: 63 Year
  Sex: Female
  Weight: 104.33 kg

DRUGS (2)
  1. REVLIMID [Suspect]
     Active Substance: LENALIDOMIDE
     Indication: Plasma cell myeloma
     Route: 048
  2. NINLARO [Suspect]
     Active Substance: IXAZOMIB CITRATE
     Indication: Product used for unknown indication

REACTIONS (6)
  - Decubitus ulcer [Recovering/Resolving]
  - Product supply issue [Unknown]
  - Therapy interrupted [Unknown]
  - Fatigue [Unknown]
  - Nausea [Unknown]
  - Abdominal pain upper [Unknown]
